FAERS Safety Report 7551514-7 (Version None)
Quarter: 2011Q2

REPORT INFORMATION
  Report Type: 
  Country: None (occurrence: None)
  Receive Date: 20110616
  Receipt Date: 20110607
  Transmission Date: 20111010
  Serious: Yes (Hospitalization, Other)
  Sender: FDA-Public Use
  Company Number: US-AMGEN-USASP2011029511

PATIENT
  Age: 58 Year
  Sex: Female

DRUGS (1)
  1. ENBREL [Suspect]
     Indication: RHEUMATOID ARTHRITIS
     Dosage: 50 MG, QWK
     Dates: start: 19980101

REACTIONS (7)
  - PANCREATIC MASS [None]
  - HYPERHIDROSIS [None]
  - FEAR OF NEEDLES [None]
  - PANCREATITIS [None]
  - CHOLELITHIASIS [None]
  - INJECTION SITE PAIN [None]
  - AXILLARY MASS [None]
